FAERS Safety Report 5579323-9 (Version None)
Quarter: 2007Q4

REPORT INFORMATION
  Report Type: 
  Country: None (occurrence: None)
  Receive Date: 20071221
  Receipt Date: 20071212
  Transmission Date: 20080405
  Serious: Yes (Death)
  Sender: FDA-Public Use
  Company Number: WAES 0712USA07245

PATIENT

DRUGS (6)
  1. DECADRON [Suspect]
     Indication: ACUTE LYMPHOCYTIC LEUKAEMIA
     Dosage: PO
     Route: 048
  2. INJ CYCLOCIDE N (CYTARABINE) [Suspect]
     Indication: ACUTE LYMPHOCYTIC LEUKAEMIA
     Dosage: IV
     Route: 042
  3. INJ LEUNASE (ASPARAGINASE) [Suspect]
     Indication: ACUTE LYMPHOCYTIC LEUKAEMIA
     Dosage: IV
     Route: 042
  4. CYCLOPHOSPHAMIDE [Suspect]
     Indication: ACUTE LYMPHOCYTIC LEUKAEMIA
  5. INJ PIRARUBICIN [Suspect]
     Indication: ACUTE LYMPHOCYTIC LEUKAEMIA
  6. INJ FILDESIN (VINDESINE SULFATE) [Suspect]
     Indication: ACUTE LYMPHOCYTIC LEUKAEMIA

REACTIONS (3)
  - HAEMORRHAGE INTRACRANIAL [None]
  - RENAL FAILURE [None]
  - TUMOUR LYSIS SYNDROME [None]
